FAERS Safety Report 7054346-1 (Version None)
Quarter: 2010Q4

REPORT INFORMATION
  Report Type: 
  Country: None (occurrence: None)
  Receive Date: 20101015
  Receipt Date: 20101001
  Transmission Date: 20110411
  Serious: Yes (Other)
  Sender: FDA-Public Use
  Company Number: 2010MA003344

PATIENT
  Age: 61 Year
  Sex: Male

DRUGS (1)
  1. DIAZEPAM [Suspect]
     Indication: ANXIETY
     Dates: end: 20070218

REACTIONS (9)
  - BLOOD PRESSURE INCREASED [None]
  - CHEST DISCOMFORT [None]
  - HALLUCINATION [None]
  - HYPOAESTHESIA [None]
  - MULTIPLE INJURIES [None]
  - PALPITATIONS [None]
  - PARAESTHESIA [None]
  - RESPIRATORY DISORDER [None]
  - WITHDRAWAL SYNDROME [None]
